FAERS Safety Report 21964524 (Version 1)
Quarter: 2023Q1

REPORT INFORMATION
  Report Type: Spontaneous
  Country: US (occurrence: US)
  Receive Date: 20230207
  Receipt Date: 20230207
  Transmission Date: 20230417
  Serious: No
  Sender: FDA-Public Use
  Company Number: US-NEURELIS, INC.-2022NEU000142

PATIENT
  Age: 47 Year
  Sex: Male

DRUGS (2)
  1. VALTOCO [Suspect]
     Active Substance: DIAZEPAM
     Indication: Seizure cluster
     Dosage: 7.5 MG
     Route: 045
  2. VALTOCO [Suspect]
     Active Substance: DIAZEPAM
     Indication: Partial seizures

REACTIONS (3)
  - Burning sensation [Recovered/Resolved]
  - Upper-airway cough syndrome [Recovered/Resolved]
  - Accidental exposure to product [Unknown]
